FAERS Safety Report 6178977-6 (Version None)
Quarter: 2009Q2

REPORT INFORMATION
  Report Type: 
  Country: None (occurrence: None)
  Receive Date: 20090505
  Receipt Date: 20090501
  Transmission Date: 20091009
  Serious: Yes (Life-Threatening)
  Sender: FDA-Public Use
  Company Number: AU-ASTRAZENECA-2009AP02970

PATIENT

DRUGS (1)
  1. MARCAINE [Suspect]
     Route: 037

REACTIONS (2)
  - ANAESTHETIC COMPLICATION [None]
  - RESPIRATORY ARREST [None]
